FAERS Safety Report 7250185-7 (Version None)
Quarter: 2011Q1

REPORT INFORMATION
  Report Type: 
  Country: None (occurrence: None)
  Receive Date: 20110128
  Receipt Date: 20101229
  Transmission Date: 20110831
  Serious: Yes (Other)
  Sender: FDA-Public Use
  Company Number: DE-BAYER-2010-000091

PATIENT
  Age: 37 Year
  Sex: Female

DRUGS (1)
  1. MIRENA [Suspect]
     Dosage: UNK
     Dates: start: 20060101

REACTIONS (3)
  - ANXIETY [None]
  - PANIC ATTACK [None]
  - HEART RATE INCREASED [None]
